FAERS Safety Report 4488807-6 (Version None)
Quarter: 2004Q4

REPORT INFORMATION
  Report Type: 
  Country: None (occurrence: None)
  Receive Date: 20041029
  Receipt Date: 20041022
  Transmission Date: 20050328
  Serious: Yes (Hospitalization)
  Sender: FDA-Public Use
  Company Number: CH-MERCK-0410CHE00046

PATIENT
  Age: 56 Year
  Sex: Male

DRUGS (6)
  1. ZOCOR [Suspect]
     Indication: HYPERCHOLESTEROLAEMIA
     Route: 048
     Dates: start: 20040719
  2. ASPIRIN [Suspect]
     Route: 048
     Dates: start: 20040719
  3. ATENOLOL [Suspect]
     Indication: HYPERTENSION
     Route: 048
     Dates: start: 20040719
  4. CIPROFLOXACIN HYDROCHLORIDE [Concomitant]
     Indication: KLEBSIELLA INFECTION
     Route: 048
     Dates: end: 20040719
  5. VANCOMYCIN [Concomitant]
     Route: 065
     Dates: end: 20040719
  6. CILASTATIN SODIUM AND IMIPENEM [Concomitant]
     Route: 042
     Dates: end: 20040719

REACTIONS (1)
  - HENOCH-SCHONLEIN PURPURA [None]
